FAERS Safety Report 21565763 (Version 1)
Quarter: 2022Q4

REPORT INFORMATION
  Report Type: Spontaneous
  Country: US (occurrence: US)
  Receive Date: 20221108
  Receipt Date: 20221108
  Transmission Date: 20230113
  Serious: No
  Sender: FDA-Public Use
  Company Number: US-OYSTER POINT PHARMA, INC-US-OYS-22-001080

PATIENT

DRUGS (1)
  1. TYRVAYA [Suspect]
     Active Substance: VARENICLINE TARTRATE
     Indication: Product used for unknown indication
     Dosage: 0.03 MILLIGRAM, UNK
     Route: 045

REACTIONS (8)
  - Insomnia [Unknown]
  - Dry throat [Unknown]
  - Dry mouth [Unknown]
  - Aptyalism [Unknown]
  - Nasal dryness [Unknown]
  - Throat irritation [Unknown]
  - Nasal discomfort [Unknown]
  - Drug ineffective [Unknown]
